FAERS Safety Report 5814436-5 (Version None)
Quarter: 2008Q3

REPORT INFORMATION
  Report Type: 
  Country: None (occurrence: None)
  Receive Date: 20080718
  Receipt Date: 20080709
  Transmission Date: 20090109
  Serious: Yes (Other)
  Sender: FDA-Public Use
  Company Number: PHEH2008US06135

PATIENT
  Age: 50 Year
  Sex: Female

DRUGS (6)
  1. RECLAST [Suspect]
     Indication: OSTEOPOROSIS
     Dosage: 5 MG, ONCE/SINGLE
     Dates: start: 20080708
  2. PREDNISONE TAB [Concomitant]
     Dosage: 5 MG, UNK
  3. SYNTHROID [Concomitant]
  4. ALBUTEROL [Concomitant]
  5. ATROVENT [Concomitant]
     Dosage: NEBULIZER PRN
  6. VITAMIN TAB [Concomitant]

REACTIONS (11)
  - ASTHENIA [None]
  - CHEST DISCOMFORT [None]
  - CHILLS [None]
  - DIZZINESS [None]
  - DYSPNOEA [None]
  - FLUSHING [None]
  - LUNG DISORDER [None]
  - MYALGIA [None]
  - PARAESTHESIA [None]
  - POOR QUALITY SLEEP [None]
  - PYREXIA [None]
